FAERS Safety Report 7859615-0 (Version None)
Quarter: 2011Q4

REPORT INFORMATION
  Report Type: 
  Country: None (occurrence: None)
  Receive Date: 20111027
  Receipt Date: 20111021
  Transmission Date: 20120403
  Serious: Yes (Other)
  Sender: FDA-Public Use
  Company Number: IL-BAYER-2011-072342

PATIENT
  Age: 45 Year
  Sex: Male

DRUGS (3)
  1. LEVOTHYROXINE SODIUM [Concomitant]
  2. INTERFERON BETA-1B [Suspect]
     Dosage: UNK
     Route: 058
     Dates: start: 20110801
  3. INTERFERON BETA-1B [Suspect]
     Indication: MULTIPLE SCLEROSIS
     Dosage: UNK
     Route: 058
     Dates: start: 20110301, end: 20110814

REACTIONS (6)
  - DYSPNOEA [None]
  - MUSCULOSKELETAL STIFFNESS [None]
  - CHILLS [None]
  - PYREXIA [None]
  - FEELING COLD [None]
  - SPEECH DISORDER [None]
